FAERS Safety Report 8168282-0 (Version None)
Quarter: 2012Q1

REPORT INFORMATION
  Report Type: 
  Country: None (occurrence: None)
  Receive Date: 20120227
  Receipt Date: 20120221
  Transmission Date: 20120608
  Serious: Yes (Hospitalization)
  Sender: FDA-Public Use
  Company Number: FR-SANOFI-AVENTIS-2012SA011198

PATIENT
  Age: 61 Year
  Sex: Male

DRUGS (5)
  1. AZACITIDINE [Suspect]
     Route: 042
     Dates: end: 20120101
  2. PLAVIX [Suspect]
     Route: 065
  3. PIPERACILLIN AND TAZOBACTAM [Suspect]
     Route: 065
  4. LEVOFLOXACIN [Suspect]
     Route: 065
  5. VFEND [Suspect]
     Route: 065

REACTIONS (1)
  - PULMONARY FIBROSIS [None]
